FAERS Safety Report 7688147-8 (Version None)
Quarter: 2011Q3

REPORT INFORMATION
  Report Type: 
  Country: None (occurrence: None)
  Receive Date: 20110817
  Receipt Date: 20110809
  Transmission Date: 20111222
  Serious: Yes (Hospitalization)
  Sender: FDA-Public Use
  Company Number: BE-SANOFI-AVENTIS-2011SA051371

PATIENT
  Age: 84 Year
  Sex: Female

DRUGS (6)
  1. FLUOROURACIL [Suspect]
     Route: 065
  2. BEVACIZUMAB [Suspect]
     Route: 065
  3. OXALIPLATIN [Suspect]
     Route: 065
  4. LEUCOVORIN CALCIUM [Suspect]
     Route: 065
  5. BEVACIZUMAB [Suspect]
     Route: 065
  6. BEVACIZUMAB [Suspect]
     Route: 065
     Dates: start: 20110503, end: 20110503

REACTIONS (1)
  - CEREBRAL ISCHAEMIA [None]
